FAERS Safety Report 13094880 (Version 2)
Quarter: 2017Q3

REPORT INFORMATION
  Report Type: Report from Study
  Country: US (occurrence: US)
  Receive Date: 20170106
  Receipt Date: 20170927
  Transmission Date: 20171127
  Serious: Yes (Other)
  Sender: FDA-Public Use
  Company Number: US-BRISTOL-MYERS SQUIBB COMPANY-BMS-2016-111254

PATIENT
  Sex: Female

DRUGS (1)
  1. ABATACEPT [Suspect]
     Active Substance: ABATACEPT
     Indication: PRODUCT USED FOR UNKNOWN INDICATION
     Dosage: 125 MG/ML, UNK
     Route: 058
     Dates: start: 2016

REACTIONS (6)
  - Swelling [Unknown]
  - Hypoaesthesia [Unknown]
  - Flushing [Unknown]
  - Feeling hot [Unknown]
  - Hallucination [Unknown]
  - Wrong technique in product usage process [Unknown]
